FAERS Safety Report 6642492-3 (Version None)
Quarter: 2010Q1

REPORT INFORMATION
  Report Type: 
  Country: None (occurrence: None)
  Receive Date: 20100316
  Receipt Date: 20100302
  Transmission Date: 20100710
  Serious: Yes (Other)
  Sender: FDA-Public Use
  Company Number: 2010AL001363

PATIENT
  Age: 62 Year
  Sex: Female

DRUGS (3)
  1. AMLODIPINE BESYLATE [Suspect]
     Indication: ESSENTIAL HYPERTENSION
     Dosage: QD
  2. SIMVASTATIN [Concomitant]
  3. ENALAPRIL MALEATE [Concomitant]

REACTIONS (4)
  - GASTRIC DISORDER [None]
  - LUNG DISORDER [None]
  - PNEUMONIA [None]
  - RESPIRATORY DISORDER [None]
